FAERS Safety Report 19487298 (Version 4)
Quarter: 2023Q2

REPORT INFORMATION
  Report Type: Report from Study
  Country: DE (occurrence: DE)
  Receive Date: 20210702
  Receipt Date: 20230406
  Transmission Date: 20230722
  Serious: Yes (Life-Threatening, Other)
  Sender: FDA-Public Use
  Company Number: NVSC2021DE119627

PATIENT
  Age: 55 Year
  Sex: Female
  Weight: 83.6 kg

DRUGS (6)
  1. MIDOSTAURIN [Suspect]
     Active Substance: MIDOSTAURIN
     Indication: Acute myeloid leukaemia
     Dosage: 50 MG
     Route: 048
     Dates: start: 20210521, end: 20210526
  2. GEMTUZUMAB OZOGAMICIN [Suspect]
     Active Substance: GEMTUZUMAB OZOGAMICIN
     Indication: Acute myeloid leukaemia
     Dosage: 4.5 MG, UNK
     Route: 042
     Dates: start: 20210514
  3. UNSPECIFIED INGREDIENT [Suspect]
     Active Substance: UNSPECIFIED INGREDIENT
     Indication: Acute myeloid leukaemia
     Dosage: NO TREATMENT
     Route: 065
  4. CYTARABINE [Concomitant]
     Active Substance: CYTARABINE
     Indication: Acute myeloid leukaemia
     Dosage: 370 MG, UNKNOWN
     Route: 042
     Dates: start: 20210514, end: 20210520
  5. DAUNORUBICIN [Concomitant]
     Active Substance: DAUNORUBICIN
     Indication: Acute myeloid leukaemia
     Dosage: 111 MG, UNKNOWN
     Route: 042
     Dates: start: 20210514, end: 20210516
  6. DEFIBROTIDE [Concomitant]
     Active Substance: DEFIBROTIDE (BOVINE)
     Indication: Product used for unknown indication
     Dosage: 400-600 MG
     Route: 065
     Dates: start: 20210528

REACTIONS (2)
  - Aspartate aminotransferase increased [Not Recovered/Not Resolved]
  - Venoocclusive liver disease [Recovered/Resolved]

NARRATIVE: CASE EVENT DATE: 20210526
